FAERS Safety Report 21765589 (Version 1)
Quarter: 2022Q4

REPORT INFORMATION
  Report Type: Spontaneous
  Country: US (occurrence: None)
  Receive Date: 20221221
  Receipt Date: 20221221
  Transmission Date: 20230113
  Serious: No
  Sender: FDA-Public Use
  Company Number: None

PATIENT
  Age: 53 Year
  Sex: Female

DRUGS (2)
  1. BOTOX [Suspect]
     Active Substance: ONABOTULINUMTOXINA
     Indication: Migraine
     Dosage: OTHER QUANTITY : 155 UNITS;?OTHER FREQUENCY : OTHER;?
     Route: 030
     Dates: start: 201801
  2. BOTOX [Suspect]
     Active Substance: ONABOTULINUMTOXINA
     Indication: Migraine without aura

REACTIONS (3)
  - Dyspnoea [None]
  - Muscular weakness [None]
  - Acquired diaphragmatic eventration [None]

NARRATIVE: CASE EVENT DATE: 20220701
